FAERS Safety Report 6320047-8 (Version None)
Quarter: 2009Q3

REPORT INFORMATION
  Report Type: 
  Country: None (occurrence: None)
  Receive Date: 20090822
  Receipt Date: 20081014
  Transmission Date: 20100115
  Serious: No
  Sender: FDA-Public Use
  Company Number: US-ABBOTT-08P-163-0481970-00

PATIENT
  Sex: Male
  Weight: 90.8 kg

DRUGS (7)
  1. NIASPAN [Suspect]
     Indication: HIGH DENSITY LIPOPROTEIN DECREASED
     Route: 048
     Dates: start: 20080901, end: 20081009
  2. NIASPAN [Suspect]
     Indication: LOW DENSITY LIPOPROTEIN INCREASED
  3. HYDROCORTISONE [Interacting]
     Indication: ACTINIC KERATOSIS
     Route: 061
     Dates: start: 20081008
  4. METFORMIN [Concomitant]
     Indication: DRUG USE FOR UNKNOWN INDICATION
  5. TOLTERODINE TARTRATE [Concomitant]
     Indication: URINARY TRACT DISORDER
     Route: 048
  6. PRAVASTATIN [Concomitant]
     Indication: DRUG USE FOR UNKNOWN INDICATION
     Route: 048
  7. DUTASTERIDE [Concomitant]
     Indication: PROSTATIC DISORDER
     Route: 048

REACTIONS (2)
  - DRUG INTERACTION [None]
  - SKIN BURNING SENSATION [None]
